FAERS Safety Report 6452100-2 (Version None)
Quarter: 2009Q4

REPORT INFORMATION
  Report Type: 
  Country: None (occurrence: None)
  Receive Date: 20091123
  Receipt Date: 20081216
  Transmission Date: 20100525
  Serious: No
  Sender: FDA-Public Use
  Company Number: US-AMGEN-KDL324192

PATIENT
  Sex: Female

DRUGS (3)
  1. ENBREL [Suspect]
     Indication: RHEUMATOID ARTHRITIS
     Route: 058
     Dates: start: 20081212
  2. PLAQUENIL [Concomitant]
     Route: 048
     Dates: start: 20071216
  3. METHOTREXATE [Concomitant]
     Dates: start: 20081116

REACTIONS (2)
  - PRURITUS GENERALISED [None]
  - URTICARIA [None]
